FAERS Safety Report 4326422-5 (Version None)
Quarter: 2004Q1

REPORT INFORMATION
  Report Type: 
  Country: None (occurrence: None)
  Receive Date: 20040323
  Receipt Date: 20040115
  Transmission Date: 20041129
  Serious: Yes (Hospitalization)
  Sender: FDA-Public Use
  Company Number: M04-341-010

PATIENT
  Age: 38 Year
  Sex: Female

DRUGS (1)
  1. VELCADE [Suspect]

REACTIONS (1)
  - OEDEMA [None]
